FAERS Safety Report 13653252 (Version 1)
Quarter: 2017Q2

REPORT INFORMATION
  Report Type: Spontaneous
  Country: US (occurrence: US)
  Receive Date: 20170614
  Receipt Date: 20170614
  Transmission Date: 20170830
  Serious: No
  Sender: FDA-Public Use
  Company Number: US-ROCHE-690005

PATIENT
  Age: 48 Year
  Sex: Female

DRUGS (4)
  1. XELODA [Suspect]
     Active Substance: CAPECITABINE
     Indication: BREAST CANCER METASTATIC
     Dosage: DOSE: 4-5 TABLETS FREQUENCY: DAILY..
     Route: 048
  2. TYKERB [Concomitant]
     Active Substance: LAPATINIB DITOSYLATE
     Route: 065
  3. HERCEPTIN [Suspect]
     Active Substance: TRASTUZUMAB
     Indication: BREAST CANCER METASTATIC
     Dosage: DRUG STARTED 7.5 YEARS AGO
     Route: 042
  4. TAXOL [Concomitant]
     Active Substance: PACLITAXEL
     Route: 065

REACTIONS (1)
  - Neuropathy peripheral [Recovered/Resolved]

NARRATIVE: CASE EVENT DATE: 2003
